FAERS Safety Report 11202064 (Version 1)
Quarter: 2015Q2

REPORT INFORMATION
  Report Type: Spontaneous
  Country: US (occurrence: None)
  Receive Date: 20150608
  Receipt Date: 20150608
  Transmission Date: 20150821
  Serious: No
  Sender: FDA-Public Use
  Company Number: 2015TUS001872

PATIENT
  Age: 61 Year
  Sex: Male
  Weight: 90.2 kg

DRUGS (4)
  1. NAPROXEN (NAPROXEN) [Concomitant]
     Active Substance: NAPROXEN
  2. OPANA [Concomitant]
     Active Substance: OXYMORPHONE HYDROCHLORIDE
  3. HYDROCODONE (HYDROCODONE) [Concomitant]
     Active Substance: HYDROCODONE
  4. BRINTELLIX [Suspect]
     Active Substance: VORTIOXETINE HYDROBROMIDE
     Indication: MAJOR DEPRESSION
     Dosage: 1 TAB
     Route: 048

REACTIONS (2)
  - Drug effect decreased [None]
  - Drug interaction [None]
